FAERS Safety Report 8453857-1 (Version None)
Quarter: 2012Q2

REPORT INFORMATION
  Report Type: 
  Country: None (occurrence: None)
  Receive Date: 20120620
  Receipt Date: 20120614
  Transmission Date: 20120825
  Serious: Yes (Death, Other)
  Sender: FDA-Public Use
  Company Number: US-TEVA-343872USA

PATIENT
  Sex: Female

DRUGS (2)
  1. ALENDRONATE SODIUM [Suspect]
  2. ALENDRONATE SODIUM [Suspect]

REACTIONS (4)
  - FEMUR FRACTURE [None]
  - HIP FRACTURE [None]
  - BONE DISORDER [None]
  - FRACTURE [None]
